FAERS Safety Report 14356055 (Version 1)
Quarter: 2018Q1

REPORT INFORMATION
  Report Type: Spontaneous
  Country: ES (occurrence: ES)
  Receive Date: 20180105
  Receipt Date: 20180105
  Transmission Date: 20180509
  Serious: Yes (Other)
  Sender: FDA-Public Use
  Company Number: ES-JNJFOC-20171004091

PATIENT
  Sex: Female
  Weight: 3.45 kg

DRUGS (2)
  1. INFLIXIMAB, RECOMBINANT [Suspect]
     Active Substance: INFLIXIMAB
     Indication: CROHN^S DISEASE
     Dosage: MOTHER^S DOSING
     Route: 042
     Dates: start: 20120801
  2. ADALIMUMAB [Suspect]
     Active Substance: ADALIMUMAB
     Indication: INFLAMMATORY BOWEL DISEASE
     Route: 065

REACTIONS (8)
  - Otitis media acute [Unknown]
  - Alpha tumour necrosis factor increased [Unknown]
  - Dermatitis atopic [Unknown]
  - Foetal exposure during pregnancy [Recovered/Resolved]
  - Monocyte count decreased [Unknown]
  - Urinary tract infection bacterial [Recovered/Resolved]
  - Bronchitis [Unknown]
  - Upper respiratory tract infection [Unknown]

NARRATIVE: CASE EVENT DATE: 2015
